FAERS Safety Report 20633068 (Version 2)
Quarter: 2022Q2

REPORT INFORMATION
  Report Type: Report from Study
  Country: CA (occurrence: CA)
  Receive Date: 20220324
  Receipt Date: 20220608
  Transmission Date: 20220720
  Serious: No
  Sender: FDA-Public Use
  Company Number: CA-KARYOPHARM-2022KPT000339

PATIENT
  Age: 72 Year
  Sex: Male

DRUGS (4)
  1. SELINEXOR [Suspect]
     Active Substance: SELINEXOR
     Indication: Plasma cell myeloma
     Dosage: 60 MG
     Route: 048
     Dates: start: 20220112, end: 202203
  2. SELINEXOR [Suspect]
     Active Substance: SELINEXOR
     Dosage: 60 MG
     Route: 048
     Dates: start: 202203, end: 202205
  3. DEXAMETHASONE [Concomitant]
     Active Substance: DEXAMETHASONE
     Indication: Plasma cell myeloma
  4. IXAZOMIB [Concomitant]
     Active Substance: IXAZOMIB
     Indication: Plasma cell myeloma

REACTIONS (2)
  - Plasma cell myeloma [Unknown]
  - Thrombocytopenia [Unknown]

NARRATIVE: CASE EVENT DATE: 20220301
